FAERS Safety Report 7722280-7 (Version None)
Quarter: 2011Q3

REPORT INFORMATION
  Report Type: 
  Country: None (occurrence: None)
  Receive Date: 20110831
  Receipt Date: 20110819
  Transmission Date: 20111222
  Serious: Yes (Death, Hospitalization, Other)
  Sender: FDA-Public Use
  Company Number: CA-ELI_LILLY_AND_COMPANY-CA201108006094

PATIENT
  Sex: Male

DRUGS (8)
  1. ATIVAN [Concomitant]
  2. AMITRIPTYLINE HCL [Concomitant]
  3. HALOPERIDOL [Concomitant]
  4. ZYPREXA [Suspect]
     Dosage: 10 MG, UNK
  5. PLAVIX [Concomitant]
  6. CLONAZEPAM [Concomitant]
  7. VALIUM [Concomitant]
  8. ZOLOFT [Concomitant]

REACTIONS (12)
  - FALL [None]
  - DEATH [None]
  - GRAND MAL CONVULSION [None]
  - ALANINE AMINOTRANSFERASE INCREASED [None]
  - BLOOD TRIGLYCERIDES INCREASED [None]
  - MYOCARDIAL INFARCTION [None]
  - BLOOD CHOLESTEROL INCREASED [None]
  - SLEEP APNOEA SYNDROME [None]
  - HEPATITIS C [None]
  - BLOOD ALKALINE PHOSPHATASE INCREASED [None]
  - TYPE 2 DIABETES MELLITUS [None]
  - HYPERTENSION [None]
